FAERS Safety Report 25963281 (Version 1)
Quarter: 2025Q4

REPORT INFORMATION
  Report Type: Spontaneous
  Country: US (occurrence: US)
  Receive Date: 20251027
  Receipt Date: 20251027
  Transmission Date: 20260118
  Serious: Yes (Other)
  Sender: NOVO NORDISK
  Company Number: US-NOVOPROD-1544864

PATIENT
  Age: 61 Year
  Sex: Female
  Weight: 55.34 kg

DRUGS (2)
  1. OZEMPIC [Suspect]
     Active Substance: SEMAGLUTIDE
     Dosage: 9 CLICKS
  2. OZEMPIC [Suspect]
     Active Substance: SEMAGLUTIDE
     Indication: Cerebrovascular accident prophylaxis
     Dosage: 19 CLICKS
     Dates: start: 2023

REACTIONS (12)
  - Craniocerebral injury [Unknown]
  - Fracture [Unknown]
  - Road traffic accident [Unknown]
  - Cerebrovascular accident [Unknown]
  - Arthralgia [Unknown]
  - Ligament sprain [Unknown]
  - Post-traumatic stress disorder [Unknown]
  - Arteriosclerosis [Unknown]
  - Weight fluctuation [Unknown]
  - Product use in unapproved indication [Unknown]
  - Incorrect dose administered [Unknown]
  - Wrong technique in product usage process [Unknown]

NARRATIVE: CASE EVENT DATE: 20250801
